FAERS Safety Report 6817109-5 (Version None)
Quarter: 2010Q2

REPORT INFORMATION
  Report Type: 
  Country: None (occurrence: None)
  Receive Date: 20100630
  Receipt Date: 20100618
  Transmission Date: 20101027
  Serious: Yes (Other)
  Sender: FDA-Public Use
  Company Number: DE-GDP-10408193

PATIENT
  Sex: Male
  Weight: 110 kg

DRUGS (2)
  1. METVIX (METHYL AMINOLEVULINATE HYDROCHLORIDE) (16.8%) [Suspect]
     Indication: BOWEN'S DISEASE
     Dosage: (6 DF 1X/WEEK TOPICAL), (1 DF TOPICAL)
     Route: 061
     Dates: start: 20090107, end: 20090206
  2. METVIX (METHYL AMINOLEVULINATE HYDROCHLORIDE) (16.8%) [Suspect]
     Indication: BOWEN'S DISEASE
     Dosage: (6 DF 1X/WEEK TOPICAL), (1 DF TOPICAL)
     Route: 061
     Dates: start: 20100430, end: 20100430

REACTIONS (3)
  - DERMATITIS ALLERGIC [None]
  - DRUG RESISTANCE [None]
  - ECZEMA [None]
